FAERS Safety Report 8569314-8 (Version None)
Quarter: 2012Q3

REPORT INFORMATION
  Report Type: 
  Country: None (occurrence: None)
  Receive Date: 20120803
  Receipt Date: 20120224
  Transmission Date: 20120928
  Serious: No
  Sender: FDA-Public Use
  Company Number: US-ABBOTT-12P-163-0908927-00

PATIENT
  Sex: Male
  Weight: 84.898 kg

DRUGS (3)
  1. NIASPAN [Suspect]
     Indication: DRUG THERAPY
  2. 13 UNKNOWN MEDICATIONS [Concomitant]
     Indication: PRODUCT USED FOR UNKNOWN INDICATION
  3. NIASPAN [Suspect]
     Indication: ARTERIAL OCCLUSIVE DISEASE
     Dates: start: 20120222, end: 20120223

REACTIONS (3)
  - SLEEP DISORDER [None]
  - FATIGUE [None]
  - FEELING ABNORMAL [None]
